FAERS Safety Report 14332069 (Version 2)
Quarter: 2018Q1

REPORT INFORMATION
  Report Type: Report from Study
  Country: DE (occurrence: DE)
  Receive Date: 20171228
  Receipt Date: 20180110
  Transmission Date: 20180509
  Serious: Yes (Hospitalization)
  Sender: FDA-Public Use
  Company Number: DE-AUROBINDO-AUR-APL-2017-47223

PATIENT
  Age: 44 Year
  Sex: Female
  Weight: 71 kg

DRUGS (21)
  1. TAFINLAR [Suspect]
     Active Substance: DABRAFENIB MESYLATE
     Indication: METASTATIC MALIGNANT MELANOMA
     Dosage: 150 MG, BID
     Route: 048
     Dates: start: 20161117
  2. TAFINLAR [Suspect]
     Active Substance: DABRAFENIB MESYLATE
     Dosage: 150 MG, BID
     Route: 048
     Dates: start: 20161019, end: 20161114
  3. IBUPROFEN. [Concomitant]
     Active Substance: IBUPROFEN
     Indication: MALIGNANT MELANOMA
     Dosage: 600 MG, QD
     Route: 048
     Dates: start: 20170214, end: 20170406
  4. MCP [Concomitant]
     Active Substance: METOCLOPRAMIDE HYDROCHLORIDE
     Indication: MALIGNANT MELANOMA
     Dosage: 10 MG, TWO TIMES A DAY
     Route: 048
     Dates: start: 20170118
  5. PANTOPRAZOLE [Concomitant]
     Active Substance: PANTOPRAZOLE
     Indication: MALIGNANT MELANOMA
     Dosage: 40 MG, QD
     Route: 048
     Dates: start: 20170829
  6. HYDROMORPHONE [Suspect]
     Active Substance: HYDROMORPHONE
     Indication: MALIGNANT MELANOMA
     Dosage: 4 MG, BID
     Route: 048
     Dates: start: 20170407, end: 20170706
  7. TRAMETINIB [Suspect]
     Active Substance: TRAMETINIB
     Dosage: 2 MG, QD
     Route: 048
     Dates: start: 20161123
  8. PREGABA [Concomitant]
     Indication: DEPRESSED MOOD
     Dosage: 75 MG, BID
     Route: 048
     Dates: start: 20170906
  9. MOVICOL [Concomitant]
     Active Substance: POLYETHYLENE GLYCOL 3350\POTASSIUM CHLORIDE\SODIUM BICARBONATE\SODIUM CHLORIDE
     Indication: PRODUCT USED FOR UNKNOWN INDICATION
     Dosage: 13.81 G, QD
     Route: 048
     Dates: start: 20170829, end: 20171128
  10. PALLADON [Concomitant]
     Active Substance: HYDROMORPHONE
     Indication: MALIGNANT MELANOMA
     Dosage: 1.3 MG, PRN (UPTO QD AS NEEDED, 2 HOUR MINIMUM IN BETWEEN)
     Route: 048
     Dates: start: 20170407
  11. PREGABA [Concomitant]
     Dosage: 75 MG, QD
     Route: 048
     Dates: start: 20170829, end: 20170905
  12. TILIDIN [Concomitant]
     Active Substance: NALOXONE HYDROCHLORIDE\TILIDINE HYDROCHLORIDE
     Indication: PRODUCT USED FOR UNKNOWN INDICATION
     Dosage: 50 MG, PRN
     Route: 048
     Dates: start: 20161115, end: 20170406
  13. ZOFRAN [Concomitant]
     Active Substance: ONDANSETRON HYDROCHLORIDE
     Indication: MALIGNANT MELANOMA
     Dosage: 8 MG, PRN
     Route: 048
     Dates: start: 20170308
  14. LAXOBERAL [Concomitant]
     Active Substance: SODIUM PICOSULFATE
     Indication: MALIGNANT MELANOMA
     Dosage: 20 DRP, QD
     Route: 048
     Dates: start: 20170407
  15. DEXAMETHASONE. [Concomitant]
     Active Substance: DEXAMETHASONE
     Indication: MALIGNANT MELANOMA
     Dosage: 4 MG, QD
     Route: 048
     Dates: start: 20170829, end: 20171128
  16. DEXAMETHASONE. [Concomitant]
     Active Substance: DEXAMETHASONE
     Dosage: 4 MG, QD
     Route: 048
     Dates: start: 20171129
  17. HYDROMORPHONE [Suspect]
     Active Substance: HYDROMORPHONE
     Indication: MALIGNANT MELANOMA
     Dosage: 4 MG, TID
     Route: 048
     Dates: start: 20170707
  18. TRAMETINIB [Suspect]
     Active Substance: TRAMETINIB
     Indication: METASTATIC MALIGNANT MELANOMA
     Dosage: 2 MG, QD
     Route: 048
     Dates: start: 20161019, end: 20161114
  19. CIPRALEX [Concomitant]
     Active Substance: ESCITALOPRAM OXALATE
     Indication: DEPRESSION
     Dosage: 10 MG, ONCE A DAY
     Route: 048
     Dates: start: 20170518
  20. PREGABA [Concomitant]
     Dosage: 150 MG, QD
     Route: 048
     Dates: start: 20171129
  21. ZOFRAN [Concomitant]
     Active Substance: ONDANSETRON HYDROCHLORIDE
     Dosage: 8 MG, TWO TIMES A DAY
     Route: 048
     Dates: start: 20161115, end: 20170307

REACTIONS (2)
  - Constipation [Unknown]
  - Abdominal pain [Recovered/Resolved]

NARRATIVE: CASE EVENT DATE: 20170829
